FAERS Safety Report 16608160 (Version 1)
Quarter: 2019Q3

REPORT INFORMATION
  Report Type: Spontaneous
  Country: US (occurrence: US)
  Receive Date: 20190719
  Receipt Date: 20190719
  Transmission Date: 20191004
  Serious: No
  Sender: FDA-Public Use
  Company Number: None

PATIENT
  Age: 3 Month
  Sex: Female

DRUGS (1)
  1. DESITIN RAPID RELIEF DIAPER RASH [Suspect]
     Active Substance: ZINC OXIDE
     Indication: DERMATITIS DIAPER
     Dosage: ?          OTHER STRENGTH:UNSPECIFIED/UNKNOW;?
     Route: 061

REACTIONS (1)
  - Adverse event [None]

NARRATIVE: CASE EVENT DATE: 20190619
